FAERS Safety Report 7418218-2 (Version None)
Quarter: 2011Q2

REPORT INFORMATION
  Report Type: 
  Country: None (occurrence: None)
  Receive Date: 20110415
  Receipt Date: 20110407
  Transmission Date: 20111010
  Serious: Yes (Hospitalization, Other)
  Sender: FDA-Public Use
  Company Number: US-AMGEN-US346542

PATIENT
  Age: 54 Year
  Sex: Male
  Weight: 86.3 kg

DRUGS (4)
  1. CORTICOSTEROID NOS [Concomitant]
  2. NPLATE [Suspect]
     Dosage: 4 A?G/KG, UNK
     Dates: end: 20100707
  3. NPLATE [Suspect]
     Indication: IDIOPATHIC THROMBOCYTOPENIC PURPURA
     Dosage: UNK UNK, UNK
     Route: 058
     Dates: start: 20081217, end: 20090429
  4. NPLATE [Suspect]
     Dates: start: 20081223, end: 20090511

REACTIONS (2)
  - HEPATIC CIRRHOSIS [None]
  - OESOPHAGEAL VARICES HAEMORRHAGE [None]
